FAERS Safety Report 9819970 (Version 1)
Quarter: 2013Q4

REPORT INFORMATION
  Report Type: Spontaneous
  Country: US (occurrence: None)
  Receive Date: 20131223
  Receipt Date: 20131223
  Transmission Date: 20140711
  Serious: No
  Sender: FDA-Public Use
  Company Number: 222694

PATIENT
  Age: 66 Year
  Sex: Female

DRUGS (1)
  1. PICATO (0.015%, GEL) [Suspect]
     Indication: ACTINIC KERATOSIS
     Dosage: ONCE DAILY FOR 3 DAYS, TOPICAL
     Route: 061
     Dates: start: 20130711, end: 20130713

REACTIONS (6)
  - Application site reaction [None]
  - Application site rash [None]
  - Application site discharge [None]
  - Application site erythema [None]
  - Application site vesicles [None]
  - Drug administered at inappropriate site [None]
